FAERS Safety Report 24408061 (Version 1)
Quarter: 2024Q4

REPORT INFORMATION
  Report Type: Spontaneous
  Country: GR (occurrence: GR)
  Receive Date: 20241007
  Receipt Date: 20241007
  Transmission Date: 20250115
  Serious: Yes (Other)
  Sender: ROCHE
  Company Number: GR-ROCHE-10000095302

PATIENT
  Age: 12 Year

DRUGS (1)
  1. EMICIZUMAB [Suspect]
     Active Substance: EMICIZUMAB
     Indication: Product used for unknown indication
     Dosage: DOSE: 1.5 MG/KG
     Route: 065

REACTIONS (2)
  - Haematoma [Unknown]
  - Fall [Unknown]
